FAERS Safety Report 8282573-4 (Version None)
Quarter: 2012Q2

REPORT INFORMATION
  Report Type: 
  Country: None (occurrence: None)
  Receive Date: 20120413
  Receipt Date: 20120404
  Transmission Date: 20120825
  Serious: Yes (Death, Life-Threatening)
  Sender: FDA-Public Use
  Company Number: JP-SANOFI-AVENTIS-2012SA021173

PATIENT
  Age: 66 Year
  Sex: Male
  Weight: 48 kg

DRUGS (6)
  1. INSULIN ASPART [Concomitant]
     Indication: TYPE 2 DIABETES MELLITUS
     Dosage: DOSE: 24 U DIVIDED INTO 3 DOSES
     Route: 058
     Dates: start: 20071024
  2. SOLOSTAR [Suspect]
     Indication: DEVICE THERAPY
     Dates: start: 20090123
  3. HMG COA REDUCTASE INHIBITORS [Concomitant]
  4. ORAL ANTIDIABETICS [Concomitant]
     Indication: TYPE 2 DIABETES MELLITUS
     Dates: start: 20000707
  5. LANTUS [Suspect]
     Indication: TYPE 2 DIABETES MELLITUS
     Dosage: DOSE:6 UNIT(S)
     Route: 058
     Dates: start: 20090123
  6. BIGUANIDES [Concomitant]
     Indication: TYPE 2 DIABETES MELLITUS
     Dates: start: 20010713

REACTIONS (1)
  - LUNG NEOPLASM MALIGNANT [None]
